FAERS Safety Report 9178163 (Version 2)
Quarter: 2012Q4

REPORT INFORMATION
  Report Type: 
  Country: US (occurrence: US)
  Receive Date: 20121026
  Receipt Date: 20121109
  Transmission Date: 20130627
  Serious: Yes (Other)
  Sender: FDA-Public Use
  Company Number: US-BRACCO-008721

PATIENT
  Age: 73 Year
  Sex: Female

DRUGS (2)
  1. ISOVUE 370 [Suspect]
     Indication: ANGIOGRAM
     Route: 042
     Dates: start: 20121009, end: 20121009
  2. ISOVUE 370 [Suspect]
     Indication: PULMONARY EMBOLISM
     Route: 042
     Dates: start: 20121009, end: 20121009

REACTIONS (3)
  - Agitation [Recovered/Resolved]
  - Nausea [Recovered/Resolved]
  - Medication error [Unknown]
